FAERS Safety Report 5241698-8 (Version None)
Quarter: 2007Q1

REPORT INFORMATION
  Report Type: 
  Country: None (occurrence: None)
  Receive Date: 20070220
  Receipt Date: 20070209
  Transmission Date: 20070707
  Serious: Yes (Hospitalization)
  Sender: FDA-Public Use
  Company Number: AU-ROCHE-482114

PATIENT
  Age: 48 Year
  Sex: Female

DRUGS (2)
  1. CAPECITABINE [Suspect]
     Dosage: GIVEN DAYS 1-14, EVERY 21 DAYS.
     Route: 048
     Dates: start: 20061031, end: 20070129
  2. LAPATINIB DITOSYLATE [Suspect]
     Route: 048
     Dates: start: 20061031, end: 20070129

REACTIONS (2)
  - MALIGNANT NEOPLASM PROGRESSION [None]
  - SOMNOLENCE [None]
